FAERS Safety Report 9290953 (Version 1)
Quarter: 2013Q2

REPORT INFORMATION
  Report Type: Spontaneous
  Country: SE (occurrence: SE)
  Receive Date: 20130515
  Receipt Date: 20130515
  Transmission Date: 20140414
  Serious: Yes (Hospitalization)
  Sender: FDA-Public Use
  Company Number: SE-ASTRAZENECA-2013SE24226

PATIENT
  Age: 79 Year
  Sex: Female

DRUGS (3)
  1. SELOKEN ZOC [Suspect]
     Indication: ESSENTIAL HYPERTENSION
     Route: 048
     Dates: end: 201302
  2. MICARDIS [Suspect]
     Indication: ESSENTIAL HYPERTENSION
     Route: 065
     Dates: end: 201302
  3. TROMBYL [Concomitant]

REACTIONS (3)
  - Syncope [Recovered/Resolved]
  - Bradycardia [Recovered/Resolved]
  - Atrioventricular block complete [Unknown]
